FAERS Safety Report 9701418 (Version 1)
Quarter: 2013Q4

REPORT INFORMATION
  Report Type: Spontaneous
  Country: US (occurrence: None)
  Receive Date: 20131120
  Receipt Date: 20131120
  Transmission Date: 20140711
  Serious: No
  Sender: FDA-Public Use
  Company Number: None

PATIENT
  Age: 69 Year
  Sex: Male
  Weight: 51 kg

DRUGS (1)
  1. ZITHROMAX [Suspect]

REACTIONS (4)
  - Infusion related reaction [None]
  - Infusion site pain [None]
  - Infusion site pruritus [None]
  - Infusion site erythema [None]
